FAERS Safety Report 10560568 (Version 10)
Quarter: 2017Q2

REPORT INFORMATION
  Report Type: Report from Study
  Country: US (occurrence: US)
  Receive Date: 20141103
  Receipt Date: 20170609
  Transmission Date: 20170829
  Serious: Yes (Other)
  Sender: FDA-Public Use
  Company Number: US-SA-2014SA114806

PATIENT
  Age: 45 Year
  Sex: Male
  Weight: 70.3 kg

DRUGS (6)
  1. LUMIZYME [Suspect]
     Active Substance: ALGLUCOSIDASE ALFA
     Indication: GLYCOGEN STORAGE DISEASE TYPE II
     Dosage: DOSE: 1750?FREQUENCY: Q2
     Route: 041
     Dates: start: 20161101
  2. OXYCODONE [Concomitant]
     Active Substance: OXYCODONE
  3. LUMIZYME [Suspect]
     Active Substance: ALGLUCOSIDASE ALFA
     Indication: GLYCOGEN STORAGE DISEASE TYPE II
     Route: 041
     Dates: start: 20070401, end: 201502
  4. TYLENOL [Concomitant]
     Active Substance: ACETAMINOPHEN
  5. LUMIZYME [Suspect]
     Active Substance: ALGLUCOSIDASE ALFA
     Indication: GLYCOGEN STORAGE DISEASE TYPE II
     Dosage: FREQUENCY: Q2
     Route: 041
     Dates: start: 2015
  6. NORCO [Concomitant]
     Active Substance: ACETAMINOPHEN\HYDROCODONE BITARTRATE

REACTIONS (13)
  - Hyperhidrosis [Recovering/Resolving]
  - Hepatic steatosis [Not Recovered/Not Resolved]
  - Diverticulitis [Recovering/Resolving]
  - Fatigue [Unknown]
  - Peptic ulcer [Unknown]
  - Ill-defined disorder [Unknown]
  - Fatigue [Not Recovered/Not Resolved]
  - Asthenia [Not Recovered/Not Resolved]
  - Ill-defined disorder [Not Recovered/Not Resolved]
  - Liver function test increased [Unknown]
  - Abdominal pain [Recovering/Resolving]
  - Cold sweat [Recovering/Resolving]
  - Back pain [Not Recovered/Not Resolved]

NARRATIVE: CASE EVENT DATE: 2014
